FAERS Safety Report 8089677-X (Version None)
Quarter: 2012Q1

REPORT INFORMATION
  Report Type: 
  Country: None (occurrence: None)
  Receive Date: 20120128
  Receipt Date: 20110712
  Transmission Date: 20120608
  Serious: Yes (Other)
  Sender: FDA-Public Use
  Company Number: US-ABBOTT-11P-163-0835894-00

PATIENT
  Sex: Female
  Weight: 72.64 kg

DRUGS (8)
  1. GLUCOPHAGE [Concomitant]
     Indication: DIABETES MELLITUS
     Route: 048
  2. GLUCOTROL [Concomitant]
     Indication: DIABETES MELLITUS
     Route: 048
  3. UNKNOWN BLOOD PRESSURE MEDICATION [Concomitant]
     Indication: HYPERTENSION
     Route: 048
  4. HUMIRA [Suspect]
     Route: 058
     Dates: start: 20110502
  5. UNKNOWN STATIN [Concomitant]
     Indication: BLOOD CHOLESTEROL INCREASED
     Route: 048
  6. NAPROXEN [Concomitant]
     Indication: ARTHRALGIA
     Dosage: 1 IN 12 HOURS, PRN
     Route: 048
  7. HUMIRA [Suspect]
     Indication: RHEUMATOID ARTHRITIS
     Route: 058
     Dates: start: 20040101, end: 20060201
  8. METHOTREXATE [Concomitant]
     Indication: RHEUMATOID ARTHRITIS
     Dosage: FOUR 2.5MG TABLETS WEEKLY
     Route: 048

REACTIONS (6)
  - UPPER LIMB FRACTURE [None]
  - INJECTION SITE PAIN [None]
  - INJECTION SITE EXTRAVASATION [None]
  - INCORRECT DOSE ADMINISTERED [None]
  - FALL [None]
  - WRONG TECHNIQUE IN DRUG USAGE PROCESS [None]
